FAERS Safety Report 11138129 (Version 3)
Quarter: 2015Q3

REPORT INFORMATION
  Report Type: Spontaneous
  Country: US (occurrence: US)
  Receive Date: 20150525
  Receipt Date: 20150726
  Transmission Date: 20151125
  Serious: Yes (Other)
  Sender: FDA-Public Use
  Company Number: US-009507513-1504USA024356

PATIENT
  Sex: Female
  Weight: 86.62 kg

DRUGS (4)
  1. CLINDAMYCIN [Concomitant]
     Active Substance: CLINDAMYCIN\CLINDAMYCIN PHOSPHATE
  2. NEXPLANON [Suspect]
     Active Substance: ETONOGESTREL
     Dosage: UNK
     Dates: start: 20140711, end: 20150128
  3. NEXPLANON [Suspect]
     Active Substance: ETONOGESTREL
     Indication: CONTRACEPTION
     Dosage: 68 MG, QD
     Dates: start: 20150128, end: 20150204
  4. ISOTRETINOIN [Concomitant]
     Active Substance: ISOTRETINOIN

REACTIONS (2)
  - Weight increased [Recovered/Resolved]
  - Device breakage [Recovered/Resolved]
